FAERS Safety Report 4361299-3 (Version None)
Quarter: 2004Q2

REPORT INFORMATION
  Report Type: 
  Country: None (occurrence: None)
  Receive Date: 20040520
  Receipt Date: 20040511
  Transmission Date: 20050107
  Serious: Yes (Hospitalization)
  Sender: FDA-Public Use
  Company Number: US-AMGEN-US076083

PATIENT
  Sex: Female

DRUGS (5)
  1. NEULASTA - PREFILLED SYRINGE [Suspect]
     Indication: CHEMOTHERAPY
     Route: 058
     Dates: start: 20040506
  2. RITUXAN [Concomitant]
     Dates: start: 20040430
  3. NOVANTRONE [Concomitant]
     Dates: start: 20040505
  4. FLUDARABINE PHOSPHATE [Concomitant]
     Dates: start: 20040503
  5. DEXAMETHASONE [Concomitant]
     Dates: start: 20040503

REACTIONS (4)
  - ASTHENIA [None]
  - BLOOD AMYLASE INCREASED [None]
  - DIARRHOEA [None]
  - LIPASE INCREASED [None]
